FAERS Safety Report 23949529 (Version 1)
Quarter: 2024Q2

REPORT INFORMATION
  Report Type: Spontaneous
  Country: CA (occurrence: CA)
  Receive Date: 20240607
  Receipt Date: 20240607
  Transmission Date: 20240716
  Serious: Yes (Life-Threatening, Hospitalization)
  Sender: FDA-Public Use
  Company Number: CA-TEVA-VS-3203903

PATIENT
  Age: 10 Year
  Sex: Female

DRUGS (3)
  1. ETOPOSIDE [Suspect]
     Active Substance: ETOPOSIDE
     Indication: Pineal germinoma
     Route: 042
  2. CARBOPLATIN [Suspect]
     Active Substance: CARBOPLATIN
     Indication: Pineal germinoma
     Dosage: DOSAGE FORM: SOLUTION INTRAVENOUS,?FREQUENCY: ONCE
     Route: 042
  3. PLATELETS [Concomitant]
     Active Substance: HUMAN PLATELET, ALLOGENIC
     Indication: Product used for unknown indication
     Dosage: PLATELET TRANSFUSION
     Route: 065

REACTIONS (1)
  - Febrile neutropenia [Recovered/Resolved]
